FAERS Safety Report 14680747 (Version 1)
Quarter: 2018Q1

REPORT INFORMATION
  Report Type: Report from Study
  Country: FR (occurrence: FR)
  Receive Date: 20180326
  Receipt Date: 20180326
  Transmission Date: 20180509
  Serious: Yes (Hospitalization)
  Sender: FDA-Public Use
  Company Number: FR-PFIZER INC-2018111303

PATIENT
  Age: 65 Year
  Sex: Female
  Weight: 100 kg

DRUGS (5)
  1. SOLUPRED /00016201/ [Concomitant]
     Active Substance: PREDNISOLONE
     Dosage: UNK
     Dates: start: 20180307
  2. SOLUPRED /00016201/ [Concomitant]
     Active Substance: PREDNISOLONE
     Indication: PAIN
     Dosage: UNK
     Dates: start: 20180109, end: 20180219
  3. PALBOCICLIB [Suspect]
     Active Substance: PALBOCICLIB
     Dosage: 125 MG, CYCLIC
     Dates: start: 20180206
  4. SOLUPRED /00016201/ [Concomitant]
     Active Substance: PREDNISOLONE
     Dosage: UNK
     Dates: start: 20180220, end: 20180306
  5. LETROZOLE. [Suspect]
     Active Substance: LETROZOLE
     Dosage: 2.5 MG, CYCLIC
     Dates: start: 20180206

REACTIONS (2)
  - Vomiting [Not Recovered/Not Resolved]
  - Dyspnoea [Not Recovered/Not Resolved]

NARRATIVE: CASE EVENT DATE: 20180312
